FAERS Safety Report 22636206 (Version 1)
Quarter: 2023Q2

REPORT INFORMATION
  Report Type: Spontaneous
  Country: US (occurrence: US)
  Receive Date: 20230623
  Receipt Date: 20230623
  Transmission Date: 20230722
  Serious: No
  Sender: FDA-Public Use
  Company Number: US-PFIZER INC-PV202300108661

PATIENT
  Age: 53 Year
  Sex: Female

DRUGS (3)
  1. NURTEC ODT [Suspect]
     Active Substance: RIMEGEPANT SULFATE
     Indication: Headache
     Dosage: 75 MG, AS NEEDED
     Route: 048
  2. NURTEC ODT [Suspect]
     Active Substance: RIMEGEPANT SULFATE
     Indication: Migraine
  3. UBRELVY [Suspect]
     Active Substance: UBROGEPANT
     Dosage: UNK

REACTIONS (3)
  - Drug ineffective [Unknown]
  - Abdominal discomfort [Unknown]
  - Diarrhoea [Unknown]
